FAERS Safety Report 19399256 (Version 1)
Quarter: 2021Q2

REPORT INFORMATION
  Report Type: Spontaneous
  Country: JP (occurrence: JP)
  Receive Date: 20210610
  Receipt Date: 20210610
  Transmission Date: 20210717
  Serious: Yes (Hospitalization, Other)
  Sender: FDA-Public Use
  Company Number: JP-ACCORD-227605

PATIENT
  Age: 52 Year
  Sex: Female
  Weight: 66.4 kg

DRUGS (6)
  1. CAPECITABINE. [Suspect]
     Active Substance: CAPECITABINE
     Indication: COLON CANCER
     Dosage: 3,000 MG*14 DAYS; EVERY 3 WEEKS  80% DOSE OF CAPECITABINE DECREASED
  2. METFORMIN [Concomitant]
     Active Substance: METFORMIN HYDROCHLORIDE
     Indication: DIABETES MELLITUS
  3. ROSUVASTATIN/ROSUVASTATIN CALCIUM [Concomitant]
     Active Substance: ROSUVASTATIN CALCIUM
     Indication: DYSLIPIDAEMIA
  4. OXALIPLATIN. [Concomitant]
     Active Substance: OXALIPLATIN
     Indication: COLON CANCER
     Dosage: 205 MG*1 DAY
  5. INSULIN [Concomitant]
     Active Substance: INSULIN NOS
     Indication: DIABETES MELLITUS MANAGEMENT
     Dosage: INTENSIVE INSULIN THERAPY
  6. CAPECITABINE. [Suspect]
     Active Substance: CAPECITABINE
     Dosage: 2,400  MG*14 DAYS, CONTINUED FOR MORE 3 COURSES OF CHEMOTHERAPY

REACTIONS (2)
  - Myelosuppression [Unknown]
  - Metabolic disorder [Recovering/Resolving]
